FAERS Safety Report 11149697 (Version 1)
Quarter: 2015Q2

REPORT INFORMATION
  Report Type: Report from Study
  Country: US (occurrence: US)
  Receive Date: 20150529
  Receipt Date: 20150529
  Transmission Date: 20150821
  Serious: Yes (Hospitalization)
  Sender: FDA-Public Use
  Company Number: US-MERCK-1505USA014877

PATIENT
  Age: 61 Year
  Sex: Male
  Weight: 61.68 kg

DRUGS (2)
  1. VORINOSTAT [Suspect]
     Active Substance: VORINOSTAT
     Indication: SQUAMOUS CELL CARCINOMA
     Dosage: 400 MG, QD
     Route: 048
     Dates: end: 20150515
  2. CISPLATIN. [Suspect]
     Active Substance: CISPLATIN
     Indication: SQUAMOUS CELL CARCINOMA
     Dosage: UNK
     Dates: end: 20150504

REACTIONS (3)
  - Febrile neutropenia [Unknown]
  - Cancer pain [Unknown]
  - Hyponatraemia [Recovered/Resolved]

NARRATIVE: CASE EVENT DATE: 20150518
